FAERS Safety Report 5359278-2 (Version None)
Quarter: 2007Q2

REPORT INFORMATION
  Report Type: 
  Country: None (occurrence: None)
  Receive Date: 20070615
  Receipt Date: 20070611
  Transmission Date: 20071010
  Serious: Yes (Hospitalization)
  Sender: FDA-Public Use
  Company Number: FR-BRISTOL-MYERS SQUIBB COMPANY-13814546

PATIENT
  Age: 62 Year
  Sex: Male

DRUGS (10)
  1. PRAVASTATIN [Suspect]
     Route: 048
     Dates: end: 20070420
  2. GLUCOPHAGE [Suspect]
     Route: 048
  3. LIPANTHYL [Suspect]
     Route: 048
     Dates: end: 20070503
  4. ORACILLINE [Suspect]
     Route: 048
     Dates: end: 20070502
  5. DEXAMETHASONE 0.5MG TAB [Suspect]
     Route: 048
     Dates: end: 20070504
  6. OMEPRAZOLE [Suspect]
     Route: 048
     Dates: end: 20070504
  7. FENOFIBRATE [Concomitant]
  8. PHENOXYMETHYL PENICILLIN [Concomitant]
  9. DEXAMETHASONE 0.5MG TAB [Concomitant]
  10. OMEPRAZOLE [Concomitant]

REACTIONS (3)
  - MOUTH HAEMORRHAGE [None]
  - PETECHIAE [None]
  - THROMBOCYTOPENIC PURPURA [None]
